FAERS Safety Report 19359844 (Version 2)
Quarter: 2021Q2

REPORT INFORMATION
  Report Type: Spontaneous
  Country: JP (occurrence: JP)
  Receive Date: 20210601
  Receipt Date: 20210628
  Transmission Date: 20210717
  Serious: Yes (Hospitalization)
  Sender: FDA-Public Use
  Company Number: JP-ELI_LILLY_AND_COMPANY-JP202105011653

PATIENT
  Age: 55 Year
  Sex: Male

DRUGS (2)
  1. TIGASONE [Concomitant]
     Active Substance: ACITRETIN
     Indication: PSORIASIS
     Dosage: 20 MG
     Dates: end: 20210608
  2. TALTZ [Suspect]
     Active Substance: IXEKIZUMAB
     Indication: PSORIASIS
     Dosage: 80 MG, DAILY
     Route: 058
     Dates: start: 20180518, end: 20210608

REACTIONS (1)
  - Lymphoma [Unknown]
